FAERS Safety Report 17936426 (Version 3)
Quarter: 2020Q3

REPORT INFORMATION
  Report Type: Spontaneous
  Country: JP (occurrence: JP)
  Receive Date: 20200624
  Receipt Date: 20200806
  Transmission Date: 20201103
  Serious: Yes (Death, Other)
  Sender: FDA-Public Use
  Company Number: JP-ASTRAZENECA-2020SE79866

PATIENT
  Age: 80 Year
  Sex: Male

DRUGS (2)
  1. TAGRISSO [Suspect]
     Active Substance: OSIMERTINIB
     Indication: NON-SMALL CELL LUNG CANCER
     Route: 048
     Dates: start: 2020, end: 2020
  2. TAGRISSO [Suspect]
     Active Substance: OSIMERTINIB
     Indication: NON-SMALL CELL LUNG CANCER
     Route: 048
     Dates: start: 2020

REACTIONS (6)
  - Death [Fatal]
  - Rash [Recovering/Resolving]
  - Epistaxis [Recovering/Resolving]
  - Decreased appetite [Unknown]
  - Renal failure [Unknown]
  - Mucosal disorder [Unknown]

NARRATIVE: CASE EVENT DATE: 2020
